FAERS Safety Report 6330905-6 (Version None)
Quarter: 2009Q3

REPORT INFORMATION
  Report Type: 
  Country: None (occurrence: None)
  Receive Date: 20090827
  Receipt Date: 20090820
  Transmission Date: 20100115
  Serious: Yes (Hospitalization)
  Sender: FDA-Public Use
  Company Number: US-ASTRAZENECA-2009SE08947

PATIENT
  Age: 782 Month
  Sex: Male
  Weight: 106.6 kg

DRUGS (6)
  1. SYMBICORT [Suspect]
     Indication: CHRONIC OBSTRUCTIVE PULMONARY DISEASE
     Dosage: 640 MCG
     Route: 055
     Dates: start: 20090401
  2. SYMBICORT [Suspect]
     Route: 055
     Dates: start: 20090801
  3. TOPROL-XL [Concomitant]
  4. LISINOPRIL [Concomitant]
  5. LASIX [Concomitant]
  6. GLIPIZIDE [Concomitant]

REACTIONS (4)
  - DRUG INEFFECTIVE [None]
  - HYPERTENSION [None]
  - MUCOSAL DISCOLOURATION [None]
  - RENAL FAILURE [None]
